FAERS Safety Report 15763850 (Version 1)
Quarter: 2018Q4

REPORT INFORMATION
  Report Type: Spontaneous
  Country: US (occurrence: US)
  Receive Date: 20181227
  Receipt Date: 20181227
  Transmission Date: 20190205
  Serious: No
  Sender: FDA-Public Use
  Company Number: US-TEVA-2018-US-926538

PATIENT
  Age: 29 Year
  Sex: Female

DRUGS (6)
  1. CEFTRIAXONE. [Suspect]
     Active Substance: CEFTRIAXONE
     Indication: KLEBSIELLA INFECTION
     Route: 042
  2. CEFIXIME. [Suspect]
     Active Substance: CEFIXIME
     Indication: KLEBSIELLA INFECTION
     Route: 048
  3. METRONIDAZOLE. [Suspect]
     Active Substance: METRONIDAZOLE
     Indication: KLEBSIELLA INFECTION
     Route: 048
  4. METRONIDAZOLE. [Suspect]
     Active Substance: METRONIDAZOLE
     Indication: LIVER ABSCESS
  5. CEFTRIAXONE. [Suspect]
     Active Substance: CEFTRIAXONE
     Indication: LIVER ABSCESS
  6. CEFIXIME. [Suspect]
     Active Substance: CEFIXIME
     Indication: LIVER ABSCESS

REACTIONS (1)
  - Maternal exposure during pregnancy [Unknown]
